FAERS Safety Report 9423428 (Version 2)
Quarter: 2013Q3

REPORT INFORMATION
  Report Type: Report from Study
  Country: US (occurrence: US)
  Receive Date: 20130726
  Receipt Date: 20130801
  Transmission Date: 20140515
  Serious: Yes (Other)
  Sender: FDA-Public Use
  Company Number: US-BAXTER-2013BAX029249

PATIENT
  Age: 53 Year
  Sex: Male
  Weight: 90.9 kg

DRUGS (7)
  1. GAMMAGARD LIQUID [Suspect]
     Indication: IMMUNODEFICIENCY COMMON VARIABLE
     Route: 042
  2. GAMMAGARD LIQUID [Suspect]
     Route: 042
  3. GAMMAGARD LIQUID [Suspect]
     Route: 042
     Dates: start: 201105
  4. SIMVASTATIN [Concomitant]
     Indication: BLOOD CHOLESTEROL
     Route: 048
     Dates: start: 2000
  5. BENAZEPRIL [Concomitant]
     Indication: BLOOD PRESSURE
     Route: 048
     Dates: start: 201304
  6. METOPROLOL ER SUCCINATE [Concomitant]
     Indication: BLOOD PRESSURE
     Route: 048
     Dates: start: 201304
  7. TYLENOL [Concomitant]
     Indication: PREMEDICATION
     Route: 048

REACTIONS (6)
  - Nasopharyngitis [Unknown]
  - Sinusitis [Unknown]
  - Sinus congestion [Recovering/Resolving]
  - Ocular hyperaemia [Recovering/Resolving]
  - Upper-airway cough syndrome [Recovering/Resolving]
  - Cough [Recovering/Resolving]
